FAERS Safety Report 10387049 (Version 1)
Quarter: 2014Q3

REPORT INFORMATION
  Report Type: Spontaneous
  Country: US (occurrence: US)
  Receive Date: 20140815
  Receipt Date: 20140815
  Transmission Date: 20150326
  Serious: Yes (Death, Other)
  Sender: FDA-Public Use
  Company Number: US-MYLANLABS-2014M1001392

PATIENT

DRUGS (3)
  1. CISPLATIN. [Suspect]
     Active Substance: CISPLATIN
     Dosage: 50 MG/M2 ON DAYS 1 AND 2 IN EVERY 3 WEEKS
     Route: 065
  2. PACLITAXEL. [Suspect]
     Active Substance: PACLITAXEL
     Dosage: 250 MG/M2 ON DAY 1 IN EVERY 3 WEEKS
     Route: 065
  3. VORINOSTAT [Suspect]
     Active Substance: VORINOSTAT
     Dosage: 180MG/M2 ONCE DAILY ON DAYS 1 THROUGH 5 AND ON DAYS 8 THROUGH 12 ADDED FROM THE SECOND CYCLE ONWARD
     Route: 048

REACTIONS (4)
  - Weight decreased [Unknown]
  - Vomiting [Unknown]
  - Thrombocytopenia [Unknown]
  - Nausea [Unknown]
